FAERS Safety Report 16285174 (Version 2)
Quarter: 2021Q1

REPORT INFORMATION
  Report Type: Spontaneous
  Country: US (occurrence: US)
  Receive Date: 20190508
  Receipt Date: 20210217
  Transmission Date: 20210419
  Serious: Yes (Other)
  Sender: FDA-Public Use
  Company Number: US-ASTRAZENECA-2019SE61484

PATIENT
  Age: 22585 Day
  Sex: Female
  Weight: 105.2 kg

DRUGS (54)
  1. NEXIUM [Suspect]
     Active Substance: ESOMEPRAZOLE MAGNESIUM
     Indication: GASTROOESOPHAGEAL REFLUX DISEASE
     Route: 048
     Dates: start: 199801, end: 201001
  2. NEXIUM [Suspect]
     Active Substance: ESOMEPRAZOLE MAGNESIUM
     Indication: GASTROOESOPHAGEAL REFLUX DISEASE
     Route: 048
     Dates: start: 200102, end: 201710
  3. PRILOSEC [Suspect]
     Active Substance: OMEPRAZOLE MAGNESIUM
     Indication: GASTROOESOPHAGEAL REFLUX DISEASE
     Route: 048
     Dates: start: 199801, end: 201001
  4. DEXILANT [Suspect]
     Active Substance: DEXLANSOPRAZOLE
     Indication: GASTROOESOPHAGEAL REFLUX DISEASE
     Route: 065
     Dates: end: 2018
  5. METOCLOPRAMIDE. [Concomitant]
     Active Substance: METOCLOPRAMIDE
     Indication: GASTROOESOPHAGEAL REFLUX DISEASE
     Dates: start: 201308, end: 201610
  6. RANITIDINE. [Concomitant]
     Active Substance: RANITIDINE
     Dates: start: 20171011, end: 20180517
  7. ALPRAZOLAM. [Concomitant]
     Active Substance: ALPRAZOLAM
  8. FAMOTIDINE. [Concomitant]
     Active Substance: FAMOTIDINE
  9. DICYCLOMINE [Concomitant]
     Active Substance: DICYCLOMINE HYDROCHLORIDE
  10. CLINDAMYCIN. [Concomitant]
     Active Substance: CLINDAMYCIN
  11. KETOCONAZOLE. [Concomitant]
     Active Substance: KETOCONAZOLE
  12. METHOCARBAMOL. [Concomitant]
     Active Substance: METHOCARBAMOL
  13. PREVNAR [Concomitant]
     Active Substance: PNEUMOCOCCAL 7-VALENT CONJUGATE VACCINE (DIPHTHERIA CRM197 PROTEIN)
  14. ATENOLOL. [Concomitant]
     Active Substance: ATENOLOL
     Indication: HYPERTENSION
     Dates: start: 201306, end: 201805
  15. SULINDAC. [Concomitant]
     Active Substance: SULINDAC
     Indication: PAIN
     Dates: start: 201308, end: 201805
  16. NEXIUM 24HR [Suspect]
     Active Substance: ESOMEPRAZOLE MAGNESIUM
     Indication: GASTROOESOPHAGEAL REFLUX DISEASE
     Route: 048
     Dates: start: 20170207
  17. ENALAPRIL [Concomitant]
     Active Substance: ENALAPRIL
     Indication: HYPERTENSION
     Dates: start: 201306, end: 201805
  18. GAVISCON [Concomitant]
     Active Substance: ALUMINUM HYDROXIDE\MAGNESIUM CARBONATE
     Dosage: 200 MG
  19. FENTANYL. [Concomitant]
     Active Substance: FENTANYL
  20. AMITIZA [Concomitant]
     Active Substance: LUBIPROSTONE
  21. DIVALPROEX [Concomitant]
     Active Substance: DIVALPROEX SODIUM
  22. HYDROCODONE [Concomitant]
     Active Substance: HYDROCODONE
     Indication: PAIN
     Dates: start: 201203, end: 201308
  23. FAMOTIDINE. [Concomitant]
     Active Substance: FAMOTIDINE
     Dates: start: 201701, end: 201807
  24. MOVANTIK [Concomitant]
     Active Substance: NALOXEGOL OXALATE
  25. BUTALBITAL [Concomitant]
     Active Substance: BUTALBITAL
     Dates: start: 201302, end: 201408
  26. TEMAZEPAM. [Concomitant]
     Active Substance: TEMAZEPAM
  27. METHOCARBAMOL. [Concomitant]
     Active Substance: METHOCARBAMOL
  28. OXYCODONE [Concomitant]
     Active Substance: OXYCODONE
  29. METHOCARBAMOL. [Concomitant]
     Active Substance: METHOCARBAMOL
  30. GABAPENTIN. [Concomitant]
     Active Substance: GABAPENTIN
  31. SULINDAC. [Concomitant]
     Active Substance: SULINDAC
  32. PRILOSEC [Suspect]
     Active Substance: OMEPRAZOLE MAGNESIUM
     Indication: GASTROOESOPHAGEAL REFLUX DISEASE
     Route: 048
     Dates: start: 1998
  33. PANTOPRAZOLE [Suspect]
     Active Substance: PANTOPRAZOLE
     Indication: GASTROOESOPHAGEAL REFLUX DISEASE
     Route: 065
     Dates: start: 2015
  34. ACIPHEX [Suspect]
     Active Substance: RABEPRAZOLE SODIUM
     Indication: GASTROOESOPHAGEAL REFLUX DISEASE
     Route: 065
     Dates: start: 201308, end: 201606
  35. PROAIR HFA [Concomitant]
     Active Substance: ALBUTEROL SULFATE
  36. FLUVIRIN NOS [Concomitant]
     Active Substance: INFLUENZA VIRUS VACCINE
  37. PROCHLORPERAZINE. [Concomitant]
     Active Substance: PROCHLORPERAZINE
  38. OXYCONTIN [Concomitant]
     Active Substance: OXYCODONE HYDROCHLORIDE
  39. DIAZEPAM. [Concomitant]
     Active Substance: DIAZEPAM
  40. DEXILANT [Suspect]
     Active Substance: DEXLANSOPRAZOLE
     Indication: GASTROOESOPHAGEAL REFLUX DISEASE
     Route: 065
     Dates: start: 199801, end: 201001
  41. PREVACID [Suspect]
     Active Substance: LANSOPRAZOLE
     Indication: GASTROOESOPHAGEAL REFLUX DISEASE
     Route: 065
  42. TEMAZEPAM. [Concomitant]
     Active Substance: TEMAZEPAM
     Indication: INSOMNIA
     Dates: start: 200901, end: 201805
  43. TRIAMTERENE. [Concomitant]
     Active Substance: TRIAMTERENE
     Indication: HYPOKALAEMIC SYNDROME
     Dates: start: 201306, end: 201805
  44. CONSTULOSE [Concomitant]
     Active Substance: LACTULOSE
  45. ONDANSETRON [Concomitant]
     Active Substance: ONDANSETRON
  46. ALPRAZOLAM. [Concomitant]
     Active Substance: ALPRAZOLAM
  47. CEFDINIR. [Concomitant]
     Active Substance: CEFDINIR
  48. METHOCARBAMOL. [Concomitant]
     Active Substance: METHOCARBAMOL
  49. HYDROCORTISONE. [Concomitant]
     Active Substance: HYDROCORTISONE
  50. PRILOSEC [Suspect]
     Active Substance: OMEPRAZOLE MAGNESIUM
     Indication: GASTROOESOPHAGEAL REFLUX DISEASE
     Dosage: GENERIC
     Route: 065
     Dates: start: 2016
  51. PREVACID [Suspect]
     Active Substance: LANSOPRAZOLE
     Indication: GASTROOESOPHAGEAL REFLUX DISEASE
     Route: 065
     Dates: start: 1998
  52. LINZESS [Concomitant]
     Active Substance: LINACLOTIDE
  53. FENTANYL. [Concomitant]
     Active Substance: FENTANYL
  54. OXYCODONE [Concomitant]
     Active Substance: OXYCODONE

REACTIONS (2)
  - Renal failure [Unknown]
  - Chronic kidney disease [Not Recovered/Not Resolved]

NARRATIVE: CASE EVENT DATE: 20140115
